FAERS Safety Report 12776640 (Version 1)
Quarter: 2016Q3

REPORT INFORMATION
  Report Type: Spontaneous
  Country: JP (occurrence: JP)
  Receive Date: 20160923
  Receipt Date: 20160923
  Transmission Date: 20161109
  Serious: Yes (Other)
  Sender: FDA-Public Use
  Company Number: JP-PRESTIUM-2016RN000447

PATIENT

DRUGS (6)
  1. AMOXAN [Concomitant]
     Active Substance: AMOXAPINE
  2. ZOVIRAX [Suspect]
     Active Substance: ACYCLOVIR
     Indication: MYELITIS
     Dosage: UNK
     Route: 065
  3. TRYPTANOL                          /00002202/ [Concomitant]
     Active Substance: AMITRIPTYLINE
     Dosage: UNK
  4. MEDICON                            /00048102/ [Concomitant]
     Active Substance: DEXTROMETHORPHAN HYDROBROMIDE
  5. LOXONIN [Concomitant]
     Active Substance: LOXOPROFEN SODIUM
  6. DEPAKENE [Concomitant]
     Active Substance: VALPROIC ACID

REACTIONS (8)
  - Neuroleptic malignant syndrome [Unknown]
  - Disseminated intravascular coagulation [Unknown]
  - Platelet count decreased [Unknown]
  - Pulmonary infarction [Unknown]
  - Pain [Unknown]
  - Depressed level of consciousness [Recovered/Resolved]
  - Haemorrhage subcutaneous [Unknown]
  - Vasculitis [Unknown]
